FAERS Safety Report 6150635-3 (Version None)
Quarter: 2009Q2

REPORT INFORMATION
  Report Type: 
  Country: None (occurrence: None)
  Receive Date: 20090409
  Receipt Date: 20090403
  Transmission Date: 20091009
  Serious: Yes (Other)
  Sender: FDA-Public Use
  Company Number: US-JNJCH-2009009421

PATIENT
  Age: 62 Year
  Sex: Female
  Weight: 54.4 kg

DRUGS (1)
  1. LISTERINE WHITENING PRE-BRUSH RINSE [Suspect]
     Indication: DENTAL CARE
     Dosage: TEXT:RECOMMEND DOSAGE TWICE DAILY FOR 3 DAYS
     Route: 048
     Dates: start: 20090328, end: 20090331

REACTIONS (5)
  - APPLICATION SITE BURN [None]
  - GINGIVAL INFECTION [None]
  - GINGIVITIS [None]
  - OEDEMA MOUTH [None]
  - ORAL MUCOSAL EXFOLIATION [None]
